FAERS Safety Report 10757171 (Version 2)
Quarter: 2015Q1

REPORT INFORMATION
  Report Type: Spontaneous
  Country: GB (occurrence: None)
  Receive Date: 20150130
  Receipt Date: 20150211
  Transmission Date: 20150721
  Serious: Yes (Death, Other)
  Sender: FDA-Public Use
  Company Number: AMAG201500038

PATIENT

DRUGS (3)
  1. RIENSO (FERUMOXYTOL) INJECTION [Suspect]
     Active Substance: FERUMOXYTOL
     Indication: IMAGING PROCEDURE
     Dosage: SINGLE
     Route: 042
     Dates: start: 20130528, end: 20130528
  2. BUSCOPAN (HYOSCINE BUTYLBROMIDE) (HYOSCINE BUTYLBROMIDE) [Concomitant]
     Active Substance: BUTYLSCOPOLAMINE
  3. ASPIRIN (ACETYLSALICYLIC ACID) [Concomitant]
     Active Substance: ASPIRIN

REACTIONS (5)
  - Cardiac arrest [None]
  - Diverticulitis [None]
  - Myocardial infarction [None]
  - Gastroenteritis [None]
  - Adenocarcinoma gastric [None]

NARRATIVE: CASE EVENT DATE: 20150116
